FAERS Safety Report 5187185-7 (Version None)
Quarter: 2006Q4

REPORT INFORMATION
  Report Type: 
  Country: None (occurrence: None)
  Receive Date: 20061214
  Receipt Date: 20061129
  Transmission Date: 20070319
  Serious: Yes (Other)
  Sender: FDA-Public Use
  Company Number: 8020541

PATIENT
  Sex: 0

DRUGS (1)
  1. KEPPRA [Suspect]
     Dosage: 1500 MG IV
     Route: 042

REACTIONS (3)
  - NAUSEA [None]
  - PNEUMONIA ASPIRATION [None]
  - VOMITING [None]
